FAERS Safety Report 7996555 (Version 3)
Quarter: 2012Q4

REPORT INFORMATION
  Report Type: 
  Country: AU (occurrence: AU)
  Receive Date: 20110617
  Receipt Date: 20121111
  Transmission Date: 20130627
  Serious: Yes (Hospitalization, Other)
  Sender: FDA-Public Use
  Company Number: PHHY2011AU51837

PATIENT
  Age: 55 Year
  Sex: Male

DRUGS (2)
  1. CLOZARIL [Suspect]
     Indication: SCHIZOPHRENIA
     Dosage: 200 mg, UNK
     Route: 048
     Dates: start: 20110519, end: 20110605
  2. VENLAFAXINE [Concomitant]
     Indication: DEPRESSION
     Dosage: 225 mg, daily
     Route: 048

REACTIONS (12)
  - Myocardial infarction [Recovering/Resolving]
  - Troponin increased [Recovering/Resolving]
  - Ventricular hypokinesia [Unknown]
  - Left ventricular dysfunction [Unknown]
  - Dilatation ventricular [Unknown]
  - Dyspnoea [Unknown]
  - C-reactive protein increased [Unknown]
  - White blood cell count increased [Unknown]
  - Neutrophil count increased [Unknown]
  - Sedation [Unknown]
  - Fatigue [Unknown]
  - Pyrexia [Unknown]
